FAERS Safety Report 8789156 (Version 1)
Quarter: 2012Q4

REPORT INFORMATION
  Report Type: 
  Country: US (occurrence: None)
  Receive Date: 20120910
  Receipt Date: 20120910
  Transmission Date: 20130627
  Serious: No
  Sender: FDA-Public Use
  Company Number: None

PATIENT
  Age: 32 Year
  Sex: Male
  Weight: 122.2 kg

DRUGS (2)
  1. PIROXICAM [Suspect]
     Indication: ARTHRITIS
     Route: 048
     Dates: end: 20120812
  2. INVEGA [Suspect]
     Dosage: 6 MG ONCE DAILY AT BEDTIME
     Route: 048

REACTIONS (2)
  - Pancreatitis acute [None]
  - Cholelithiasis [None]
